FAERS Safety Report 9507543 (Version 2)
Quarter: 2013Q4

REPORT INFORMATION
  Report Type: Spontaneous
  Country: JP (occurrence: JP)
  Receive Date: 20130909
  Receipt Date: 20131010
  Transmission Date: 20140711
  Serious: Yes (Other)
  Sender: FDA-Public Use
  Company Number: JP-NAPPMUNDI-GBR-2013-0015564

PATIENT
  Age: 63 Year
  Sex: Female

DRUGS (14)
  1. OXYCODONE HCL PR TABLET 10 MG [Suspect]
     Indication: LUNG NEOPLASM MALIGNANT
     Dosage: 10 MG, DAILY
     Route: 048
     Dates: start: 20130604
  2. RINDERON [Suspect]
     Indication: LUNG NEOPLASM MALIGNANT
     Dosage: 4 MG, DAILY
     Route: 042
     Dates: start: 20130624, end: 20130624
  3. RINDERON [Suspect]
     Dosage: 12 MG, DAILY
     Route: 042
     Dates: start: 20130625, end: 20130625
  4. RINDERON [Suspect]
     Dosage: 8 MG, DAILY
     Route: 042
     Dates: start: 20130702, end: 20130706
  5. RINDERON [Suspect]
     Dosage: 4 MG, DAILY
     Route: 042
     Dates: start: 20130707, end: 20130716
  6. RINDERON [Suspect]
     Dosage: 3.0 UNK, UNK
     Route: 048
     Dates: start: 20130717, end: 20130723
  7. PANVITAN                           /00466101/ [Concomitant]
     Dosage: 1 GRAM, DAILY
     Route: 048
     Dates: start: 20130606
  8. MAGMITT [Concomitant]
     Dosage: 750 MG, DAILY
     Dates: start: 20130615
  9. DEPAS [Concomitant]
     Dosage: 0.5 MG, DAILY
     Route: 048
  10. LIPITOR [Concomitant]
     Indication: HYPERLIPIDAEMIA
     Dosage: 5 MG, DAILY
     Route: 048
  11. OMEPRAZOLE [Concomitant]
     Indication: GASTRIC ULCER
     Dosage: 20 MG, DAILY
     Route: 048
  12. LOXONIN [Concomitant]
     Indication: METASTASES TO BONE
     Dosage: 180 MG, DAILY
     Route: 048
     Dates: start: 20130604
  13. MUCOSTA [Concomitant]
     Indication: METASTASES TO BONE
     Dosage: 300 MG, DAILY
     Route: 048
     Dates: start: 20130604
  14. GLYCEOL                            /00744501/ [Concomitant]
     Dosage: UNK
     Route: 042
     Dates: start: 20130624

REACTIONS (2)
  - Hepatic function abnormal [Recovering/Resolving]
  - Drug-induced liver injury [Recovering/Resolving]
